FAERS Safety Report 14393128 (Version 1)
Quarter: 2018Q1

REPORT INFORMATION
  Report Type: Spontaneous
  Country: US (occurrence: US)
  Receive Date: 20180112
  Receipt Date: 20180112
  Transmission Date: 20180509
  Serious: Yes (Hospitalization)
  Sender: FDA-Public Use
  Company Number: None

PATIENT
  Age: 83 Year
  Sex: Male
  Weight: 77.47 kg

DRUGS (2)
  1. WARFARIN [Suspect]
     Active Substance: WARFARIN
     Indication: ATRIAL FIBRILLATION
     Dates: start: 20151016, end: 20171018
  2. AZITHROMYCIN ANHYDROUS. [Suspect]
     Active Substance: AZITHROMYCIN ANHYDROUS
     Indication: UPPER RESPIRATORY TRACT INFECTION
     Dates: start: 20171019, end: 20171021

REACTIONS (7)
  - International normalised ratio increased [None]
  - Abdominal pain [None]
  - Constipation [None]
  - Haemoglobin decreased [None]
  - Therapy cessation [None]
  - Abdominal wall haematoma [None]
  - Upper respiratory tract infection [None]

NARRATIVE: CASE EVENT DATE: 20171021
